FAERS Safety Report 18119984 (Version 1)
Quarter: 2020Q3

REPORT INFORMATION
  Report Type: Spontaneous
  Country: CN (occurrence: CN)
  Receive Date: 20200806
  Receipt Date: 20200806
  Transmission Date: 20201103
  Serious: Yes (Death, Other)
  Sender: FDA-Public Use
  Company Number: CN-BAYER-2020-160429

PATIENT
  Age: 50 Year
  Sex: Male

DRUGS (2)
  1. NEXAVAR [Suspect]
     Active Substance: SORAFENIB
     Indication: HEPATIC CANCER STAGE II
     Dosage: 400 MG, BID
     Route: 048
     Dates: start: 20170427, end: 201905
  2. STIVARGA [Suspect]
     Active Substance: REGORAFENIB
     Indication: HEPATIC CANCER
     Dosage: 120 MG, QD
     Route: 048
     Dates: start: 201905, end: 2020

REACTIONS (11)
  - Hepatic cancer [None]
  - Metastases to abdominal wall [None]
  - Abdominal discomfort [None]
  - Death [Fatal]
  - Metastases to lung [None]
  - Off label use [None]
  - Hepatic cancer [None]
  - Hepatic artery stenosis [None]
  - Haemoptysis [None]
  - Gastrointestinal haemorrhage [None]
  - Diarrhoea [None]

NARRATIVE: CASE EVENT DATE: 201905
